FAERS Safety Report 5130247-0 (Version None)
Quarter: 2006Q4

REPORT INFORMATION
  Report Type: 
  Country: None (occurrence: None)
  Receive Date: 20061013
  Receipt Date: 20060928
  Transmission Date: 20070319
  Serious: Yes (Hospitalization)
  Sender: FDA-Public Use
  Company Number: REM_00263_2006

PATIENT
  Age: 11 Year
  Sex: Male
  Weight: 31 kg

DRUGS (13)
  1. REMODULIN [Suspect]
     Indication: PULMONARY HYPERTENSION
     Dates: start: 20060501
  2. REMODULIN [Suspect]
     Indication: PULMONARY HYPERTENSION
     Dosage: 174 NG/KG/MIN CONTINUOUS IV
     Route: 042
  3. LASIX [Concomitant]
  4. ALDACTONE [Concomitant]
  5. DIGOXIN [Concomitant]
  6. COUMADIN [Concomitant]
  7. SINGULAIR /01362601/ [Concomitant]
  8. FLUTICASONE PROPIONATE [Concomitant]
  9. SALMETEROL [Concomitant]
  10. IRON SUPPLEMENT [Concomitant]
  11. PREVACID [Concomitant]
  12. PERIACTIN [Concomitant]
  13. OXYGEN [Concomitant]

REACTIONS (12)
  - ARTHRALGIA [None]
  - BLOOD CULTURE POSITIVE [None]
  - BLOOD PRESSURE DIASTOLIC DECREASED [None]
  - CATHETER SITE RELATED REACTION [None]
  - CENTRAL LINE INFECTION [None]
  - DIARRHOEA [None]
  - ENTEROBACTER INFECTION [None]
  - EPISTAXIS [None]
  - FATIGUE [None]
  - INGUINAL HERNIA REPAIR [None]
  - OCCULT BLOOD POSITIVE [None]
  - SKIN DISORDER [None]
